FAERS Safety Report 4306819-X (Version None)
Quarter: 2004Q1

REPORT INFORMATION
  Report Type: 
  Country: None (occurrence: None)
  Receive Date: 20040225
  Receipt Date: 20040205
  Transmission Date: 20041129
  Serious: Yes (Other)
  Sender: FDA-Public Use
  Company Number: USA040258646

PATIENT
  Age: 72 Year
  Sex: Female
  Weight: 60 kg

DRUGS (8)
  1. FORTEO [Suspect]
     Indication: OSTEOPOROSIS
     Dosage: 20 UG/DAY
     Dates: start: 20030501, end: 20040129
  2. ACTONEL [Concomitant]
  3. SYNTRHOID (LEVOTHYROXINE SODIUM) [Concomitant]
  4. ASPIRIN [Concomitant]
  5. CELEBREX [Concomitant]
  6. FIORICET [Concomitant]
  7. ULTRAM [Concomitant]
  8. IRON [Concomitant]

REACTIONS (6)
  - BODY HEIGHT DECREASED [None]
  - CHEST X-RAY ABNORMAL [None]
  - CONDITION AGGRAVATED [None]
  - EMPHYSEMA [None]
  - LUNG DISORDER [None]
  - PULMONARY MYCOSIS [None]
